FAERS Safety Report 12298957 (Version 10)
Quarter: 2021Q2

REPORT INFORMATION
  Report Type: Spontaneous
  Country: CA (occurrence: CA)
  Receive Date: 20160425
  Receipt Date: 20210610
  Transmission Date: 20210716
  Serious: Yes (Hospitalization, Other)
  Sender: FDA-Public Use
  Company Number: CA-ROCHE-1743051

PATIENT
  Sex: Female

DRUGS (15)
  1. BUPRENORPHINE HYDROCHLORIDE. [Suspect]
     Active Substance: BUPRENORPHINE HYDROCHLORIDE
     Indication: DRUG DEPENDENCE
     Dosage: THERAPY DURATION:  2.0 DAY(S)
     Route: 060
  2. ABILIFY [Suspect]
     Active Substance: ARIPIPRAZOLE
     Indication: PRODUCT USED FOR UNKNOWN INDICATION
     Route: 048
  3. ARIPIPRAZOLE. [Suspect]
     Active Substance: ARIPIPRAZOLE
     Indication: PRODUCT USED FOR UNKNOWN INDICATION
     Route: 065
  4. BUPRENORPHINE. [Suspect]
     Active Substance: BUPRENORPHINE
     Indication: PRODUCT USED FOR UNKNOWN INDICATION
     Route: 065
  5. BUPRENORPHINE HYDROCHLORIDE. [Suspect]
     Active Substance: BUPRENORPHINE HYDROCHLORIDE
     Route: 060
  6. BUPRENORPHINE HYDROCHLORIDE. [Suspect]
     Active Substance: BUPRENORPHINE HYDROCHLORIDE
     Route: 060
  7. VYVANSE [Suspect]
     Active Substance: LISDEXAMFETAMINE DIMESYLATE
     Indication: PRODUCT USED FOR UNKNOWN INDICATION
     Route: 048
  8. DIAZEPAM. [Suspect]
     Active Substance: DIAZEPAM
     Indication: PRODUCT USED FOR UNKNOWN INDICATION
     Route: 065
  9. NALOXONE HYDROCHLORIDE. [Suspect]
     Active Substance: NALOXONE HYDROCHLORIDE
     Indication: DRUG DEPENDENCE
     Route: 065
  10. VYVANSE [Suspect]
     Active Substance: LISDEXAMFETAMINE DIMESYLATE
     Route: 065
  11. NALOXONE [Suspect]
     Active Substance: NALOXONE
     Indication: PRODUCT USED FOR UNKNOWN INDICATION
     Route: 065
  12. NALOXONE [Suspect]
     Active Substance: NALOXONE
     Route: 065
  13. NICOTINE. [Suspect]
     Active Substance: NICOTINE
     Indication: SMOKING CESSATION THERAPY
     Route: 065
  14. NALOXONE HYDROCHLORIDE. [Suspect]
     Active Substance: NALOXONE HYDROCHLORIDE
     Route: 065
  15. NARCAN [Suspect]
     Active Substance: NALOXONE HYDROCHLORIDE
     Indication: PRODUCT USED FOR UNKNOWN INDICATION
     Route: 065

REACTIONS (7)
  - Product use issue [Unknown]
  - Transfusion [Recovered/Resolved]
  - Maternal exposure during pregnancy [Unknown]
  - Caesarean section [Unknown]
  - Breech presentation [Recovered/Resolved]
  - Rhesus incompatibility [Recovered/Resolved]
  - Premature delivery [Unknown]
